FAERS Safety Report 6713811-4 (Version None)
Quarter: 2010Q2

REPORT INFORMATION
  Report Type: 
  Country: None (occurrence: None)
  Receive Date: 20100426
  Receipt Date: 20100112
  Transmission Date: 20101027
  Serious: Yes (Hospitalization)
  Sender: FDA-Public Use
  Company Number: 2009BI040838

PATIENT
  Age: 59 Year
  Sex: Female

DRUGS (3)
  1. TYSABRI [Suspect]
     Indication: MULTIPLE SCLEROSIS
     Dosage: 300 MG;QM;IV
     Route: 042
     Dates: start: 20071130
  2. AVONEX [Concomitant]
  3. REBIF [Concomitant]

REACTIONS (5)
  - ASTHENIA [None]
  - BLOOD COUNT ABNORMAL [None]
  - IMMUNE SYSTEM DISORDER [None]
  - MUSCLE SPASMS [None]
  - URINARY TRACT INFECTION [None]
